FAERS Safety Report 25259628 (Version 1)
Quarter: 2025Q2

REPORT INFORMATION
  Report Type: Spontaneous
  Country: FR (occurrence: FR)
  Receive Date: 20250501
  Receipt Date: 20250501
  Transmission Date: 20250716
  Serious: Yes (Hospitalization)
  Sender: FRESENIUS KABI
  Company Number: None

PATIENT
  Age: 76 Year
  Sex: Male
  Weight: 75.8 kg

DRUGS (14)
  1. PIPERACILLIN AND TAZOBACTAM [Suspect]
     Active Substance: PIPERACILLIN SODIUM\TAZOBACTAM SODIUM
     Indication: Pneumonia
     Dosage: 4G/0.5G 1-1-1
     Route: 042
     Dates: start: 20250407, end: 20250408
  2. IVERMECTIN VIATRIS 3 mg, tablet [Concomitant]
     Indication: Infection parasitic
     Route: 048
     Dates: start: 20250407, end: 20250407
  3. METHYLPREDNISOLONE VIATRIS 500 mg, powder for injectable solution [Concomitant]
     Indication: Anti-neutrophil cytoplasmic antibody positive vasculitis
     Route: 042
     Dates: start: 20250407, end: 20250410
  4. LOVENOX 4000 UI anti-Xa/0.4 ml, solution for injection in pre-filled s [Concomitant]
     Indication: Thrombosis prophylaxis
     Route: 058
     Dates: start: 20250402
  5. ZYMAD 50,000 IU, oral solution in ampoule [Concomitant]
     Indication: Vitamin D deficiency
     Route: 048
     Dates: start: 20250402
  6. CALCIDOSE VITAMIN D, oral powder in sachet [Concomitant]
     Indication: Mineral supplementation
     Dosage: 500MG/400UI 1-0-1
     Route: 048
     Dates: start: 20250407
  7. CALCIDOSE VITAMIN D, oral powder in sachet [Concomitant]
     Indication: Vitamin supplementation
  8. FOLIC ACID ARROW 5 mg, tablet [Concomitant]
     Indication: Vitamin supplementation
     Dosage: 5MG 1-0-1
     Route: 048
     Dates: start: 20250402, end: 20250414
  9. FOLIC ACID ARROW 5 mg, tablet [Concomitant]
     Dosage: 5MG 1-0-0
     Route: 048
     Dates: start: 20250414
  10. CONTRAMAL 100 mg/ml, oral solution [Concomitant]
     Indication: Pain
     Dosage: 0-0-1
     Route: 048
     Dates: start: 20250402, end: 20250414
  11. CONTRAMAL 100 mg/ml, oral solution [Concomitant]
     Route: 048
     Dates: start: 20250402, end: 20250414
  12. DOLIPRANE 500 mg, capsule [Concomitant]
     Indication: Pain
     Route: 048
     Dates: start: 20250402
  13. GABAPENTIN ARROW GENERICS 100 mg, capsule [Concomitant]
     Indication: Pain
     Dosage: 100MG 1-1-1
     Route: 048
     Dates: start: 20250405
  14. ALPRAZOLAM ARROW 0.25 mg, scored tablet [Concomitant]
     Indication: Anxiety
     Dosage: 0-0-0-1
     Route: 048
     Dates: start: 20250402, end: 20250410

REACTIONS (1)
  - Anaphylactic reaction [Recovered/Resolved]

NARRATIVE: CASE EVENT DATE: 20250408
